FAERS Safety Report 4573442-1 (Version None)
Quarter: 2005Q1

REPORT INFORMATION
  Report Type: 
  Country: None (occurrence: None)
  Receive Date: 20050208
  Receipt Date: 20040816
  Transmission Date: 20050727
  Serious: No
  Sender: FDA-Public Use
  Company Number: US-GLAXOSMITHKLINE-A0522433A

PATIENT
  Sex: Male

DRUGS (2)
  1. PAXIL [Suspect]
     Indication: DEPRESSION
     Dosage: 40MG PER DAY
     Route: 048
     Dates: start: 19990101
  2. TRAZODONE [Suspect]
     Indication: INSOMNIA
     Dosage: 25MG PER DAY
     Route: 048
     Dates: start: 19990101

REACTIONS (22)
  - ARTHRALGIA [None]
  - BACK PAIN [None]
  - CHILLS [None]
  - CRYING [None]
  - DIARRHOEA [None]
  - DIFFICULTY IN WALKING [None]
  - DRUG INEFFECTIVE [None]
  - DRUG WITHDRAWAL SYNDROME [None]
  - DYSPNOEA [None]
  - ERECTILE DYSFUNCTION [None]
  - HYPERHIDROSIS [None]
  - IMPAIRED DRIVING ABILITY [None]
  - LOCAL SWELLING [None]
  - MASS [None]
  - NAUSEA [None]
  - NIGHTMARE [None]
  - PAIN IN EXTREMITY [None]
  - PARAESTHESIA [None]
  - PRURITUS GENERALISED [None]
  - TOOTH DISORDER [None]
  - URINARY TRACT PAIN [None]
  - WEIGHT INCREASED [None]
